FAERS Safety Report 4401280-9 (Version None)
Quarter: 2004Q3

REPORT INFORMATION
  Report Type: 
  Country: None (occurrence: None)
  Receive Date: 20040907
  Receipt Date: 20040209
  Transmission Date: 20050211
  Serious: No
  Sender: FDA-Public Use
  Company Number: US-BRISTOL-MYERS SQUIBB COMPANY-12499794

PATIENT
  Age: 58 Year
  Sex: Female
  Weight: 118 kg

DRUGS (6)
  1. COUMADIN [Suspect]
     Indication: THROMBOSIS
     Route: 048
     Dates: start: 20021130, end: 20030531
  2. VITAMIN [Concomitant]
  3. GARLIC [Concomitant]
  4. MOVE FREE [Concomitant]
     Indication: ARTHRITIS
  5. ANSAID [Concomitant]
  6. SYNTHROID [Concomitant]

REACTIONS (3)
  - DERMATITIS EXFOLIATIVE [None]
  - DRY SKIN [None]
  - PRURITUS [None]
